FAERS Safety Report 15951677 (Version 10)
Quarter: 2021Q1

REPORT INFORMATION
  Report Type: Spontaneous
  Country: US (occurrence: US)
  Receive Date: 20190211
  Receipt Date: 20210204
  Transmission Date: 20210419
  Serious: No
  Sender: FDA-Public Use
  Company Number: US-PFIZER INC-2019062641

PATIENT
  Age: 75 Year
  Sex: Female
  Weight: 71.21 kg

DRUGS (4)
  1. IBRANCE [Suspect]
     Active Substance: PALBOCICLIB
     Dosage: UNK
  2. IBRANCE [Suspect]
     Active Substance: PALBOCICLIB
     Dosage: 125 MG, CYCLIC (DAILY FOR 21 DAYS BY MOUTH THEN OFF FOR 7 DAYS)
     Route: 048
  3. IBRANCE [Suspect]
     Active Substance: PALBOCICLIB
     Indication: BREAST CANCER METASTATIC
     Dosage: 125 MG, CYCLIC (DAILY FOR 3 WEEKS AND OFF FOR 1 WEEK )
     Route: 048
     Dates: start: 201901, end: 2019
  4. IBRANCE [Suspect]
     Active Substance: PALBOCICLIB
     Dosage: ON 3 WEEKS AND OFF 2 WEEKS

REACTIONS (13)
  - Ear infection [Unknown]
  - Feeling abnormal [Unknown]
  - Oedema [Unknown]
  - Nasopharyngitis [Recovered/Resolved]
  - Alopecia [Unknown]
  - Fatigue [Not Recovered/Not Resolved]
  - Mental disorder [Unknown]
  - Dysarthria [Unknown]
  - White blood cell count abnormal [Unknown]
  - Pain in extremity [Unknown]
  - Somnolence [Recovered/Resolved]
  - Impaired quality of life [Unknown]
  - Depression [Not Recovered/Not Resolved]

NARRATIVE: CASE EVENT DATE: 2019
